FAERS Safety Report 10019243 (Version 4)
Quarter: 2020Q3

REPORT INFORMATION
  Report Type: Report from Study
  Country: BR (occurrence: BR)
  Receive Date: 20140318
  Receipt Date: 20140529
  Transmission Date: 20201104
  Serious: Yes (Life-Threatening, Hospitalization)
  Sender: FDA-Public Use
  Company Number: BR-JNJFOC-20140307618

PATIENT
  Age: 70 Year
  Sex: Female
  Weight: 68 kg

DRUGS (2)
  1. IBRUTINIB [Suspect]
     Active Substance: IBRUTINIB
     Indication: MANTLE CELL LYMPHOMA
     Dosage: MEDICAL KIT 10230
     Route: 048
     Dates: start: 20130910, end: 20140310
  2. IBRUTINIB [Suspect]
     Active Substance: IBRUTINIB
     Route: 048

REACTIONS (1)
  - Supraventricular tachycardia [Recovered/Resolved with Sequelae]

NARRATIVE: CASE EVENT DATE: 20140309
